FAERS Safety Report 21998735 (Version 2)
Quarter: 2023Q1

REPORT INFORMATION
  Report Type: Spontaneous
  Country: US (occurrence: US)
  Receive Date: 20230216
  Receipt Date: 20230313
  Transmission Date: 20230418
  Serious: Yes (Other)
  Sender: FDA-Public Use
  Company Number: US-RECKITT BENCKISER HEALTHCARE INT LIMITED-RB-085398-2023

PATIENT
  Age: 88 Year
  Sex: Male

DRUGS (2)
  1. MUCINEX [Suspect]
     Active Substance: GUAIFENESIN
     Indication: Respiratory tract congestion
     Dosage: 1 DOSAGE FORM, QD (AMOUNT USED 8 TABLETS)
     Route: 048
     Dates: start: 20230202, end: 20230207
  2. ELIQUIS [Concomitant]
     Active Substance: APIXABAN
     Indication: Thrombosis
     Dosage: 2 DOSAGE FORM, QD
     Route: 065

REACTIONS (5)
  - Macular degeneration [Recovering/Resolving]
  - Hallucination, visual [Recovered/Resolved]
  - Vision blurred [Recovered/Resolved]
  - Dry eye [Recovering/Resolving]
  - Product use in unapproved indication [Recovered/Resolved]

NARRATIVE: CASE EVENT DATE: 20230203
